FAERS Safety Report 9820184 (Version 1)
Quarter: 2014Q1

REPORT INFORMATION
  Report Type: Spontaneous
  Country: None (occurrence: None)
  Receive Date: 20140113
  Receipt Date: 20140113
  Transmission Date: 20141002
  Serious: Yes (Disabling)
  Sender: FDA-Public Use
  Company Number: None

PATIENT
  Age: 78 Year
  Sex: Male
  Weight: 72 kg

DRUGS (1)
  1. AMLOR [Suspect]
     Indication: HYPERTENSION
     Dosage: A CAPSULE
     Route: 048

REACTIONS (5)
  - Dementia Alzheimer^s type [None]
  - Heart rate increased [None]
  - Hypertension [None]
  - Amnesia [None]
  - Impaired driving ability [None]
